FAERS Safety Report 15750971 (Version 1)
Quarter: 2018Q4

REPORT INFORMATION
  Report Type: Spontaneous
  Country: US (occurrence: US)
  Receive Date: 20181221
  Receipt Date: 20181221
  Transmission Date: 20190205
  Serious: No
  Sender: FDA-Public Use
  Company Number: US-THERAPEUTICSMD-2018TMD00139

PATIENT
  Sex: Female
  Weight: 98.41 kg

DRUGS (8)
  1. VITAMIN B COMPLEX [Concomitant]
     Active Substance: CYANOCOBALAMIN\DEXPANTHENOL\NIACINAMIDE\PYRIDOXINE HYDROCHLORIDE\RIBOFLAVIN 5^-PHOSPHATE SODIUM\THIAMINE HYDROCHLORIDE\VITAMIN B COMPLEX
     Dosage: 100 UNK, 1X/DAY
  2. IMVEXXY [Suspect]
     Active Substance: ESTRADIOL
     Dosage: 10 ?G 2X/WEEK; SOMETIMES AT BEDTIME, SOMETIMES IN THE MORNING^10 ?G, 2X/WEEK
     Route: 067
     Dates: start: 2018
  3. VITAMIN D [Concomitant]
     Active Substance: CHOLECALCIFEROL
     Dosage: 5000 UNK, 1X/DAY
  4. CALCIUM AND MAGNESIUM [Concomitant]
     Active Substance: CALCIUM\MAGNESIUM
     Dosage: 1200 UNK, 1X/DAY
  5. IMVEXXY [Suspect]
     Active Substance: ESTRADIOL
     Indication: VULVOVAGINAL DRYNESS
     Dosage: 10 ?G, 1X/DAY ^SOMETIMES AT BEDTIME, SOMETIMES IN THE MORNING^
     Route: 067
     Dates: start: 2018, end: 2018
  6. IMVEXXY [Suspect]
     Active Substance: ESTRADIOL
     Dosage: 10 ?G, 2X/WEEK ^SOMETIMES AT BEDTIME, SOMETIMES IN THE MORNING^
     Route: 067
     Dates: start: 2018, end: 2018
  7. IMVEXXY [Suspect]
     Active Substance: ESTRADIOL
     Dosage: 10 ?G, 1X/WEEK; ^SOMETIMES AT BEDTIME, SOMETIMES IN THE MORNING^
     Route: 067
     Dates: start: 2018, end: 2018
  8. VITAMIN C [Concomitant]
     Active Substance: ASCORBIC ACID
     Dosage: 2000-3000 1X/DAY

REACTIONS (3)
  - Off label use [Not Recovered/Not Resolved]
  - Abdominal distension [Recovering/Resolving]
  - Weight increased [Not Recovered/Not Resolved]

NARRATIVE: CASE EVENT DATE: 2018
